FAERS Safety Report 18529078 (Version 1)
Quarter: 2020Q4

REPORT INFORMATION
  Report Type: Spontaneous
  Country: BR (occurrence: BR)
  Receive Date: 20201120
  Receipt Date: 20201120
  Transmission Date: 20210114
  Serious: Yes (Life-Threatening, Other)
  Sender: FDA-Public Use
  Company Number: NVSC2020BR310247

PATIENT
  Age: 59 Year
  Sex: Female

DRUGS (5)
  1. ALPELISIB [Suspect]
     Active Substance: ALPELISIB
     Dosage: 200 MG
     Route: 065
     Dates: end: 202009
  2. ALPELISIB [Suspect]
     Active Substance: ALPELISIB
     Dosage: 250 MG
     Route: 065
  3. FULVESTRANT. [Suspect]
     Active Substance: FULVESTRANT
     Indication: BREAST CANCER METASTATIC
     Dosage: 500 MG, QMO
     Route: 030
  4. ALPELISIB [Suspect]
     Active Substance: ALPELISIB
     Dosage: 200 MG, QD
     Route: 048
     Dates: start: 202010
  5. ALPELISIB [Suspect]
     Active Substance: ALPELISIB
     Indication: BREAST CANCER METASTATIC
     Dosage: UNK
     Route: 065

REACTIONS (4)
  - Asthenia [Unknown]
  - Hyperglycaemia [Recovering/Resolving]
  - Toxicity to various agents [Unknown]
  - Pyelonephritis [Unknown]
